FAERS Safety Report 9728385 (Version 1)
Quarter: 2013Q4

REPORT INFORMATION
  Report Type: Report from Study
  Country: CA (occurrence: CA)
  Receive Date: 20131204
  Receipt Date: 20131204
  Transmission Date: 20140711
  Serious: Yes (Hospitalization)
  Sender: FDA-Public Use
  Company Number: CA-JNJFOC-20131116349

PATIENT
  Age: 74 Year
  Sex: Female
  Weight: 65 kg

DRUGS (14)
  1. REMICADE [Suspect]
     Indication: CROHN^S DISEASE
     Dosage: 44TH INFUSION
     Route: 042
  2. ASPIRIN [Concomitant]
     Route: 065
  3. PANTOPRAZOLE [Concomitant]
     Route: 065
  4. CRESTOR [Concomitant]
     Route: 065
  5. EZETROL [Concomitant]
     Route: 065
  6. LEVOTHYROXINE [Concomitant]
     Route: 065
  7. ESTROGENS [Concomitant]
     Route: 065
  8. HCTZ [Concomitant]
     Route: 065
  9. GLUCOSAMINE [Concomitant]
     Route: 065
  10. IRON [Concomitant]
     Route: 065
  11. CALCIUM [Concomitant]
     Route: 065
  12. LACTULOSE [Concomitant]
     Route: 065
  13. DOMPERIDONE [Concomitant]
     Route: 065
  14. NORVASC [Concomitant]
     Route: 065

REACTIONS (2)
  - Myocardial infarction [Recovering/Resolving]
  - Venous thrombosis [Recovering/Resolving]
